FAERS Safety Report 10637128 (Version 2)
Quarter: 2015Q1

REPORT INFORMATION
  Report Type: Spontaneous
  Country: ES (occurrence: ES)
  Receive Date: 20141208
  Receipt Date: 20150106
  Transmission Date: 20150720
  Serious: Yes (Other)
  Sender: FDA-Public Use
  Company Number: ES-TEVA-525913ISR

PATIENT
  Age: 78 Year
  Sex: Female

DRUGS (1)
  1. PENTOXIFYLLINE. [Suspect]
     Active Substance: PENTOXIFYLLINE
     Indication: PERIPHERAL VASCULAR DISORDER
     Route: 065

REACTIONS (3)
  - Vascular encephalopathy [Unknown]
  - Anxiety [Unknown]
  - Hallucination, auditory [Recovered/Resolved]
